FAERS Safety Report 4348420-8 (Version None)
Quarter: 2004Q2

REPORT INFORMATION
  Report Type: 
  Country: None (occurrence: None)
  Receive Date: 20040423
  Receipt Date: 20040413
  Transmission Date: 20050107
  Serious: Yes (Death, Hospitalization)
  Sender: FDA-Public Use
  Company Number: US068762

PATIENT
  Age: 47 Year
  Sex: Female

DRUGS (12)
  1. ENBREL [Suspect]
     Indication: RHEUMATOID ARTHRITIS
     Dosage: 25 MG, 2 IN 1 WEEKS, SC
     Route: 058
     Dates: start: 20030116, end: 20040210
  2. ACCUPRIL [Concomitant]
  3. FLUTICASONE PROPIONATE [Concomitant]
  4. ASTELIN [Concomitant]
  5. FLUTICASONE/SALMETEROL [Concomitant]
  6. ALBUTEROL [Concomitant]
  7. OMEPRAZOLE [Concomitant]
  8. DIAZEPAM [Concomitant]
  9. AMITRIPTYLINE HYDROCHLORIDE [Concomitant]
  10. ESTRADIOL [Concomitant]
  11. MEDROXYPROGESTERONE ACETATE [Concomitant]
  12. GUAIFENESIN + PSEUDOEPHEDRINE [Concomitant]

REACTIONS (9)
  - ACUTE RESPIRATORY DISTRESS SYNDROME [None]
  - BLOOD GASES ABNORMAL [None]
  - EJECTION FRACTION DECREASED [None]
  - HYPOTENSION [None]
  - INFLUENZA [None]
  - LUNG INFILTRATION [None]
  - MENTAL STATUS CHANGES [None]
  - PNEUMONIA [None]
  - VENTRICULAR DYSFUNCTION [None]
